FAERS Safety Report 4622007-1 (Version None)
Quarter: 2005Q1

REPORT INFORMATION
  Report Type: 
  Country: None (occurrence: None)
  Receive Date: 20050328
  Receipt Date: 20050316
  Transmission Date: 20050727
  Serious: Yes (Hospitalization)
  Sender: FDA-Public Use
  Company Number: USA-2005-0019468

PATIENT
  Age: 57 Year
  Sex: Male

DRUGS (7)
  1. SENOKOT [Suspect]
  2. OXYCONTIN TABELTS (OXYCODONE HYDROCHLORIDE) CR TABLET [Concomitant]
  3. PREDNISONE [Concomitant]
  4. CELEBREX [Concomitant]
  5. RANITIDINE [Concomitant]
  6. METHOTREXATE [Concomitant]
  7. HYDROCODONE BITARTRATE [Concomitant]

REACTIONS (4)
  - CONDITION AGGRAVATED [None]
  - LYMPHADENOPATHY [None]
  - OEDEMA PERIPHERAL [None]
  - PAIN IN EXTREMITY [None]
